FAERS Safety Report 5370083-3 (Version None)
Quarter: 2007Q2

REPORT INFORMATION
  Report Type: 
  Country: None (occurrence: None)
  Receive Date: 20070626
  Receipt Date: 20070618
  Transmission Date: 20071010
  Serious: Yes (Hospitalization)
  Sender: FDA-Public Use
  Company Number: US-JNJFOC-20070604314

PATIENT
  Sex: Male

DRUGS (10)
  1. TYLENOL (CAPLET) [Suspect]
  2. TYLENOL (CAPLET) [Suspect]
     Indication: BACK PAIN
  3. EXTRA STRENGTH TYLENOL [Suspect]
  4. EXTRA STRENGTH TYLENOL [Suspect]
     Indication: BACK PAIN
  5. ZOCOR [Concomitant]
     Indication: BLOOD CHOLESTEROL INCREASED
  6. NIACIN [Concomitant]
     Indication: BLOOD CHOLESTEROL INCREASED
  7. SYNTHROID [Concomitant]
     Indication: HYPOTHYROIDISM
  8. FLOMAX [Concomitant]
     Indication: BENIGN PROSTATIC HYPERPLASIA
  9. AMBIEN [Concomitant]
     Indication: SLEEP DISORDER
  10. AMIODARONE [Concomitant]
     Indication: ARRHYTHMIA PROPHYLAXIS

REACTIONS (2)
  - ABDOMINAL PAIN UPPER [None]
  - EXPIRED DRUG ADMINISTERED [None]
